FAERS Safety Report 6042262-3 (Version None)
Quarter: 2009Q1

REPORT INFORMATION
  Report Type: 
  Country: None (occurrence: None)
  Receive Date: 20090116
  Receipt Date: 20090112
  Transmission Date: 20090719
  Serious: Yes (Other)
  Sender: FDA-Public Use
  Company Number: SE-PFIZER INC-2008101360

PATIENT

DRUGS (5)
  1. XALCOM [Suspect]
     Indication: GLAUCOMA
     Dosage: UNK
     Dates: start: 20020318, end: 20081210
  2. XALATAN [Suspect]
  3. ENALAPRIL MALEATE [Concomitant]
     Dosage: UNK
     Route: 048
     Dates: start: 20040729
  4. ESIDRIX [Concomitant]
     Dosage: UNK
     Route: 048
     Dates: start: 20000821, end: 20081210
  5. LOGIMAX [Concomitant]
     Dosage: UNK
     Route: 048
     Dates: start: 19950412, end: 20081210

REACTIONS (4)
  - AMNESIA [None]
  - ATRIAL FIBRILLATION [None]
  - CARDIAC FAILURE [None]
  - DRUG INEFFECTIVE [None]
